FAERS Safety Report 6016818-8 (Version None)
Quarter: 2008Q4

REPORT INFORMATION
  Report Type: 
  Country: None (occurrence: None)
  Receive Date: 20081219
  Receipt Date: 20081205
  Transmission Date: 20090506
  Serious: Yes (Other)
  Sender: FDA-Public Use
  Company Number: ENT 2008-0186

PATIENT
  Age: 60 Year
  Sex: Female

DRUGS (2)
  1. COMTAN [Suspect]
     Indication: PARKINSON'S DISEASE
     Dosage: 1000 MG (200 MG,5 IN 1 D)
     Route: 048
     Dates: start: 20080801
  2. XANAX [Concomitant]

REACTIONS (6)
  - ERYTHEMA [None]
  - HYPERTONIA [None]
  - HYPOKINESIA [None]
  - MUSCULOSKELETAL STIFFNESS [None]
  - PARAESTHESIA [None]
  - TETANY [None]
